FAERS Safety Report 4285666-1 (Version None)
Quarter: 2004Q1

REPORT INFORMATION
  Report Type: 
  Country: None (occurrence: None)
  Receive Date: 20040204
  Receipt Date: 20040204
  Transmission Date: 20041129
  Serious: Yes (Life-Threatening)
  Sender: FDA-Public Use
  Company Number: None

PATIENT
  Sex: Male
  Weight: 90.7194 kg

DRUGS (2)
  1. ENBREL [Suspect]
     Indication: ANKYLOSING SPONDYLITIS
     Dosage: 25 MG TWICE A WEEK SUBCUTANEOUS
     Route: 058
     Dates: start: 20010904, end: 20020805
  2. INDOMETHACIN [Concomitant]

REACTIONS (5)
  - CSF OLIGOCLONAL BAND PRESENT [None]
  - DISEASE RECURRENCE [None]
  - NUCLEAR MAGNETIC RESONANCE IMAGING BRAIN ABNORMAL [None]
  - PAIN [None]
  - PARAESTHESIA [None]
